FAERS Safety Report 7797669-0 (Version None)
Quarter: 2011Q4

REPORT INFORMATION
  Report Type: 
  Country: None (occurrence: None)
  Receive Date: 20111005
  Receipt Date: 20110923
  Transmission Date: 20120403
  Serious: Yes (Other)
  Sender: FDA-Public Use
  Company Number: PHHY2011IT85026

PATIENT
  Age: 71 Year
  Sex: Male

DRUGS (3)
  1. CEPHALOSPORIN [Concomitant]
     Dosage: UNK UKN, UNK
  2. TASIGNA [Suspect]
     Indication: CHRONIC MYELOID LEUKAEMIA
     Dosage: 600 MG, DAILY
     Route: 048
     Dates: start: 20101101, end: 20110801
  3. ROSUVASTATIN [Concomitant]
     Dosage: UNK UKN, UNK

REACTIONS (1)
  - INFARCTION [None]
